FAERS Safety Report 14002794 (Version 3)
Quarter: 2018Q1

REPORT INFORMATION
  Report Type: Spontaneous
  Country: US (occurrence: US)
  Receive Date: 20170922
  Receipt Date: 20180202
  Transmission Date: 20180508
  Serious: No
  Sender: FDA-Public Use
  Company Number: US-JNJFOC-20170807656

PATIENT
  Age: 83 Year
  Sex: Female
  Weight: 63.5 kg

DRUGS (2)
  1. XARELTO [Suspect]
     Active Substance: RIVAROXABAN
     Indication: PROPHYLAXIS
     Dosage: NDC NUMBER: 50458-0580-30
     Route: 048
     Dates: start: 20170729, end: 20170806
  2. XARELTO [Suspect]
     Active Substance: RIVAROXABAN
     Indication: HIP SURGERY
     Dosage: NDC NUMBER: 50458-0580-30
     Route: 048
     Dates: start: 20170729, end: 20170806

REACTIONS (4)
  - Pain [Not Recovered/Not Resolved]
  - Product lot number issue [Unknown]
  - Feeling abnormal [Recovered/Resolved]
  - Rash pruritic [Recovering/Resolving]

NARRATIVE: CASE EVENT DATE: 2017
